FAERS Safety Report 5529349-6 (Version None)
Quarter: 2007Q4

REPORT INFORMATION
  Report Type: 
  Country: None (occurrence: None)
  Receive Date: 20071129
  Receipt Date: 20071121
  Transmission Date: 20080405
  Serious: Yes (Hospitalization)
  Sender: FDA-Public Use
  Company Number: A0664868A

PATIENT
  Age: 42 Year
  Sex: Female

DRUGS (3)
  1. LAMICTAL [Suspect]
     Indication: BIPOLAR DISORDER
     Dosage: 100MG TWICE PER DAY
     Route: 048
     Dates: start: 20060601, end: 20070601
  2. CELEXA [Concomitant]
  3. BLOOD PRESSURE MEDICATION [Concomitant]

REACTIONS (13)
  - AMNESIA [None]
  - ANAEMIA [None]
  - CONCUSSION [None]
  - CONTUSION [None]
  - DIZZINESS [None]
  - FACIAL BONES FRACTURE [None]
  - FALL [None]
  - FEAR [None]
  - MEMORY IMPAIRMENT [None]
  - MUSCLE SPASMS [None]
  - NASAL OEDEMA [None]
  - VISUAL DISTURBANCE [None]
  - WITHDRAWAL SYNDROME [None]
